FAERS Safety Report 9310915 (Version 2)
Quarter: 2013Q3

REPORT INFORMATION
  Report Type: Spontaneous
  Country: US (occurrence: US)
  Receive Date: 20130528
  Receipt Date: 20130924
  Transmission Date: 20140515
  Serious: Yes (Life-Threatening, Hospitalization)
  Sender: FDA-Public Use
  Company Number: US-JNJFOC-20130507286

PATIENT
  Age: 66 Year
  Sex: Male

DRUGS (7)
  1. XARELTO [Suspect]
     Indication: DEEP VEIN THROMBOSIS
     Dosage: 20 DAYS
     Route: 048
     Dates: start: 20130401, end: 201304
  2. XARELTO [Suspect]
     Indication: DEEP VEIN THROMBOSIS
     Route: 048
     Dates: start: 201304, end: 20130501
  3. AMLODIPINE [Concomitant]
     Indication: HYPERTENSION
     Route: 065
  4. SIMVASTATIN [Concomitant]
     Indication: LIPIDS ABNORMAL
     Route: 065
  5. OMEPRAZOLE [Concomitant]
     Indication: GASTROOESOPHAGEAL REFLUX DISEASE
     Route: 065
  6. ZESTORETIC [Concomitant]
     Indication: HYPERTENSION
     Dosage: 20/25 MG
     Route: 065
  7. IMIPRAMINE [Concomitant]
     Indication: URINARY INCONTINENCE
     Route: 065

REACTIONS (3)
  - Deep vein thrombosis [Recovering/Resolving]
  - Pulmonary embolism [Recovering/Resolving]
  - Treatment failure [Recovering/Resolving]
